FAERS Safety Report 4630179-8 (Version None)
Quarter: 2005Q2

REPORT INFORMATION
  Report Type: 
  Country: None (occurrence: None)
  Receive Date: 20050408
  Receipt Date: 20041209
  Transmission Date: 20051028
  Serious: Yes (Hospitalization)
  Sender: FDA-Public Use
  Company Number: PHNU2004DE04126

PATIENT
  Age: 69 Year
  Sex: Male

DRUGS (8)
  1. CO-DIOVAN [Suspect]
     Indication: HYPERTENSION
     Dosage: 1 DF, QD
     Route: 048
     Dates: start: 20041201
  2. CO-DIOVAN [Suspect]
     Dosage: 1 DF, QD
     Route: 048
     Dates: end: 20041207
  3. CO-DIOVAN [Suspect]
     Dosage: 1 DF, QD
     Route: 048
     Dates: start: 20041208, end: 20041201
  4. CYNT ^LILLY^ [Concomitant]
     Dosage: INTAKE IN THE MORNING
  5. NORVASC [Concomitant]
     Dosage: 1 DF, QD
  6. CARMEN [Concomitant]
  7. CONCOR [Concomitant]
     Dosage: 1 DF, BID
  8. ACETYL SALICYLIC ACID USP BAT [Concomitant]
     Dosage: 1 DF, QD

REACTIONS (6)
  - BLOOD PRESSURE INADEQUATELY CONTROLLED [None]
  - BLOOD PRESSURE INCREASED [None]
  - CARDIAC PACEMAKER INSERTION [None]
  - FLUSHING [None]
  - HEART RATE DECREASED [None]
  - SYNCOPE [None]
